FAERS Safety Report 25903945 (Version 1)
Quarter: 2025Q4

REPORT INFORMATION
  Report Type: Spontaneous
  Country: EU (occurrence: EU)
  Receive Date: 20251010
  Receipt Date: 20251010
  Transmission Date: 20260119
  Serious: Yes (Death, Hospitalization)
  Sender: AUROBINDO
  Company Number: EU-AFSSAPS-RS2025000813

PATIENT
  Age: 93 Year
  Sex: Male
  Weight: 68.8 kg

DRUGS (3)
  1. CLOZAPINE [Suspect]
     Active Substance: CLOZAPINE
     Indication: Product used for unknown indication
     Dosage: 100 MILLIGRAM, 1 X TOTAL
     Route: 048
     Dates: start: 20250715, end: 20250715
  2. MIDODRINE HYDROCHLORIDE [Concomitant]
     Active Substance: MIDODRINE HYDROCHLORIDE
     Indication: Product used for unknown indication
     Dosage: 5 MILLIGRAM, 1 X TOTAL
     Route: 048
     Dates: start: 20250715, end: 20250715
  3. ANETHOLTRITHION [Concomitant]
     Active Substance: ANETHOLTRITHION
     Indication: Product used for unknown indication
     Dosage: 50 MILLIGRAM, 1 X TOTAL
     Route: 048
     Dates: start: 20250715, end: 20250715

REACTIONS (3)
  - Dysphagia [Fatal]
  - Somnolence [Recovered/Resolved]
  - Wrong patient received product [Recovered/Resolved]

NARRATIVE: CASE EVENT DATE: 20250715
